FAERS Safety Report 5793469-1 (Version None)
Quarter: 2008Q2

REPORT INFORMATION
  Report Type: 
  Country: None (occurrence: None)
  Receive Date: 20080627
  Receipt Date: 20080618
  Transmission Date: 20081010
  Serious: Yes (Hospitalization)
  Sender: FDA-Public Use
  Company Number: RU-JNJFOC-20080601290

PATIENT
  Age: 56 Year
  Sex: Female

DRUGS (4)
  1. TAVANIC [Suspect]
     Indication: POST PROCEDURAL INFECTION
     Route: 048
  2. TAVANIC [Suspect]
     Indication: PYREXIA
     Route: 048
  3. GLURENORM [Interacting]
     Indication: DIABETES MELLITUS
     Route: 048
  4. LEVEMIR [Concomitant]
     Indication: DIABETES MELLITUS
     Route: 058

REACTIONS (2)
  - DRUG INTERACTION [None]
  - HYPOGLYCAEMIC COMA [None]
